FAERS Safety Report 9409314 (Version 8)
Quarter: 2013Q4

REPORT INFORMATION
  Report Type: Spontaneous
  Country: US (occurrence: US)
  Receive Date: 20130719
  Receipt Date: 20131212
  Transmission Date: 20140711
  Serious: Yes (Other)
  Sender: FDA-Public Use
  Company Number: US-PFIZER INC-2013208791

PATIENT
  Age: 76 Year
  Sex: Female
  Weight: 88.89 kg

DRUGS (18)
  1. SUTENT [Suspect]
     Indication: RENAL CELL CARCINOMA
     Dosage: 25 MG, DAILY
     Route: 048
     Dates: start: 20130618, end: 20131203
  2. SUTENT [Suspect]
     Dosage: UNK
     Dates: end: 2013
  3. SUTENT [Suspect]
     Dosage: 25 MG, UNK
     Route: 048
     Dates: start: 20130819
  4. SUTENT [Suspect]
     Dosage: 25 MG, UNK
     Dates: start: 20131019
  5. CARDIAZEM [Concomitant]
     Dosage: UNK
  6. AVAPRO [Concomitant]
     Dosage: UNK
  7. HYDROCHLOROTHIAZIDE [Concomitant]
     Dosage: UNK
  8. LASIX [Concomitant]
     Dosage: UNK
  9. ZOMETA [Concomitant]
     Indication: METASTASES TO BONE
     Dosage: UNK, MONTHLY INFUSION
  10. CO-Q-10 [Concomitant]
     Dosage: UNK
  11. VITAMIN B [Concomitant]
     Dosage: UNK
  12. VITAMIN C [Concomitant]
     Dosage: UNK
  13. LIPOIC ACID [Concomitant]
     Dosage: UNK
  14. NATEGLINIDE [Concomitant]
     Dosage: UNK
  15. HYDROCODONE W/ACETAMINOPHEN [Concomitant]
     Dosage: UNK
  16. ZOCOR [Concomitant]
     Dosage: UNK
  17. PRILOSEC [Concomitant]
     Dosage: UNK
  18. ZOFRAN [Concomitant]
     Dosage: UNK

REACTIONS (14)
  - Tooth infection [Unknown]
  - Tooth abscess [Recovered/Resolved]
  - Respiratory tract infection [Unknown]
  - Blood creatinine increased [Unknown]
  - Eyelid oedema [Unknown]
  - Nausea [Not Recovered/Not Resolved]
  - Flatulence [Unknown]
  - Abdominal distension [Unknown]
  - Blister [Unknown]
  - Pelvic pain [Unknown]
  - Back pain [Unknown]
  - Groin pain [Unknown]
  - Arthralgia [Unknown]
  - White blood cell count decreased [Unknown]
